FAERS Safety Report 7901928-8 (Version None)
Quarter: 2011Q4

REPORT INFORMATION
  Report Type: 
  Country: None (occurrence: None)
  Receive Date: 20111108
  Receipt Date: 20111027
  Transmission Date: 20120403
  Serious: Yes (Other)
  Sender: FDA-Public Use
  Company Number: US-BAYER-2011-049678

PATIENT
  Age: 25 Year
  Sex: Female
  Weight: 136.5 kg

DRUGS (7)
  1. TOPAMAX [Concomitant]
     Indication: HEADACHE
     Dosage: UNK
     Dates: start: 20070101
  2. TOPAMAX [Concomitant]
     Indication: MIGRAINE
  3. NAPROXEN [Concomitant]
  4. YAZ [Suspect]
     Indication: MENSTRUATION IRREGULAR
     Dosage: UNK
     Dates: start: 20070501, end: 20080101
  5. HYDROCODONE BITARTRATE AND ACETAMINOPHEN [Concomitant]
  6. SYMBYAX [Concomitant]
     Indication: ANXIETY
     Dosage: UNK
     Dates: start: 20070101, end: 20090101
  7. PREVACID [Concomitant]

REACTIONS (3)
  - BILIARY DYSKINESIA [None]
  - GALLBLADDER DISORDER [None]
  - PAIN [None]
